FAERS Safety Report 6508472-3 (Version None)
Quarter: 2009Q4

REPORT INFORMATION
  Report Type: 
  Country: None (occurrence: None)
  Receive Date: 20091221
  Receipt Date: 20081202
  Transmission Date: 20100525
  Serious: No
  Sender: FDA-Public Use
  Company Number: US-ASTRAZENECA-2008UW26860

PATIENT
  Age: 63 Year
  Sex: Male
  Weight: 83 kg

DRUGS (5)
  1. CRESTOR [Suspect]
     Indication: BLOOD CHOLESTEROL INCREASED
     Dosage: 40 MG
     Route: 048
  2. GLUCOPHAGE [Concomitant]
  3. ACTOS [Concomitant]
  4. PLAVIX [Concomitant]
  5. ZETIA [Concomitant]

REACTIONS (1)
  - BLOOD GLUCOSE INCREASED [None]
